FAERS Safety Report 5895578-5 (Version None)
Quarter: 2008Q3

REPORT INFORMATION
  Report Type: 
  Country: None (occurrence: None)
  Receive Date: 20080924
  Receipt Date: 20080115
  Transmission Date: 20090109
  Serious: No
  Sender: FDA-Public Use
  Company Number: US-ASTRAZENECA-2006UW08118

PATIENT
  Age: 22 Year
  Sex: Female
  Weight: 91.6 kg

DRUGS (10)
  1. SEROQUEL [Suspect]
     Indication: BIPOLAR DISORDER
     Route: 048
     Dates: start: 19980101, end: 20030101
  2. SEROQUEL [Suspect]
     Indication: DEPRESSION
     Route: 048
     Dates: start: 19980101, end: 20030101
  3. SEROQUEL [Suspect]
     Indication: INSOMNIA
     Route: 048
     Dates: start: 19980101, end: 20030101
  4. CLOZARIL [Concomitant]
  5. GEODON [Concomitant]
  6. NAVANE [Concomitant]
  7. RISPERDAL [Concomitant]
  8. STELAZINE [Concomitant]
  9. THORAZINE [Concomitant]
  10. ZYPREXA [Concomitant]

REACTIONS (4)
  - ADVERSE DRUG REACTION [None]
  - DIABETES MELLITUS [None]
  - DRUG EXPOSURE DURING PREGNANCY [None]
  - GESTATIONAL DIABETES [None]
